FAERS Safety Report 5977584-5 (Version None)
Quarter: 2008Q4

REPORT INFORMATION
  Report Type: 
  Country: None (occurrence: None)
  Receive Date: 20081201
  Receipt Date: 20081201
  Transmission Date: 20090506
  Serious: Yes (Other)
  Sender: FDA-Public Use
  Company Number: None

PATIENT
  Age: 50 Year
  Sex: Female
  Weight: 74.8435 kg

DRUGS (1)
  1. LEVAQUIN [Suspect]
     Dosage: 1 TABLET DAILY DAILY PO
     Route: 048
     Dates: start: 20081121, end: 20081127

REACTIONS (3)
  - MOBILITY DECREASED [None]
  - PAIN [None]
  - TENDONITIS [None]
